FAERS Safety Report 5398196-0 (Version None)
Quarter: 2007Q3

REPORT INFORMATION
  Report Type: 
  Country: None (occurrence: None)
  Receive Date: 20070726
  Receipt Date: 20070717
  Transmission Date: 20080115
  Serious: Yes (Other)
  Sender: FDA-Public Use
  Company Number: DE-PFIZER INC-2007037443

PATIENT
  Sex: Female
  Weight: 39 kg

DRUGS (1)
  1. ZITHROMAX [Suspect]
     Indication: UPPER RESPIRATORY TRACT INFECTION
     Dosage: DAILY DOSE:380MG
     Route: 048
     Dates: start: 20070505, end: 20070506

REACTIONS (5)
  - ANXIETY [None]
  - ASTHENIA [None]
  - HEADACHE [None]
  - MUSCLE TWITCHING [None]
  - NAUSEA [None]
